FAERS Safety Report 25094887 (Version 1)
Quarter: 2025Q1

REPORT INFORMATION
  Report Type: Report from Study
  Country: ES (occurrence: ES)
  Receive Date: 20250319
  Receipt Date: 20250319
  Transmission Date: 20250408
  Serious: Yes (Other)
  Sender: GILEAD
  Company Number: ES-GILEAD-2025-0707290

PATIENT
  Age: 8 Decade
  Sex: Male

DRUGS (1)
  1. AXICABTAGENE CILOLEUCEL [Suspect]
     Active Substance: AXICABTAGENE CILOLEUCEL
     Indication: B-cell lymphoma
     Route: 065

REACTIONS (1)
  - Myelodysplastic syndrome [Not Recovered/Not Resolved]
